FAERS Safety Report 5801809-X (Version None)
Quarter: 2008Q3

REPORT INFORMATION
  Report Type: 
  Country: None (occurrence: None)
  Receive Date: 20080702
  Receipt Date: 20080625
  Transmission Date: 20090109
  Serious: No
  Sender: FDA-Public Use
  Company Number: THQ2008A01090

PATIENT
  Age: 80 Year
  Sex: Female

DRUGS (3)
  1. ACTOS [Suspect]
  2. METFORMIN [Concomitant]
  3. GLYBURIDE [Concomitant]

REACTIONS (1)
  - PULMONARY OEDEMA [None]
